FAERS Safety Report 12968064 (Version 2)
Quarter: 2016Q4

REPORT INFORMATION
  Report Type: Spontaneous
  Country: IT (occurrence: IT)
  Receive Date: 20161123
  Receipt Date: 20161201
  Transmission Date: 20170207
  Serious: Yes (Hospitalization, Other)
  Sender: FDA-Public Use
  Company Number: IT-APOTEX-2016AP014926

PATIENT
  Age: 65 Year
  Sex: Male

DRUGS (9)
  1. GLUCOPHAGE [Suspect]
     Active Substance: METFORMIN HYDROCHLORIDE
     Indication: TYPE 2 DIABETES MELLITUS
     Dosage: 500 MG, QD
     Route: 065
  2. CRESTOR [Suspect]
     Active Substance: ROSUVASTATIN CALCIUM
     Indication: HYPERCHOLESTEROLAEMIA
     Dosage: 10 MG, QD
     Route: 065
  3. ESOPRAL                            /01479302/ [Suspect]
     Active Substance: ESOMEPRAZOLE MAGNESIUM
     Indication: OESOPHAGITIS
  4. PAXIL [Suspect]
     Active Substance: PAROXETINE HYDROCHLORIDE
     Indication: DEPRESSION
     Dosage: 20 MG, QD
     Route: 065
     Dates: end: 20160715
  5. CIPRALEX [Suspect]
     Active Substance: ESCITALOPRAM OXALATE
     Indication: DEPRESSION
     Dosage: 4 MG, QD
     Route: 065
     Dates: start: 20160715
  6. DIAMOX                             /00016901/ [Suspect]
     Active Substance: ACETAZOLAMIDE
     Indication: TINNITUS
     Dosage: 250 MG, QD
     Route: 065
     Dates: start: 20160715
  7. SEREUPIN [Suspect]
     Active Substance: PAROXETINE HYDROCHLORIDE
     Indication: PRODUCT USED FOR UNKNOWN INDICATION
     Dosage: UNK
     Route: 065
  8. ESOPRAL                            /01479302/ [Suspect]
     Active Substance: ESOMEPRAZOLE MAGNESIUM
     Indication: HIATUS HERNIA
     Dosage: 20 MG, QD
     Route: 065
  9. MUSCORIL [Suspect]
     Active Substance: THIOCOLCHICOSIDE
     Indication: TINNITUS
     Dosage: 4 MG, QD
     Route: 065
     Dates: start: 20160715

REACTIONS (4)
  - Tinnitus [Not Recovered/Not Resolved]
  - Immune thrombocytopenic purpura [Unknown]
  - Gingival bleeding [Unknown]
  - Petechiae [Unknown]

NARRATIVE: CASE EVENT DATE: 20160727
